FAERS Safety Report 21597937 (Version 1)
Quarter: 2022Q4

REPORT INFORMATION
  Report Type: Spontaneous
  Country: US (occurrence: US)
  Receive Date: 20221115
  Receipt Date: 20221115
  Transmission Date: 20230113
  Serious: No
  Sender: FDA-Public Use
  Company Number: US-002147023-NVSC2022US256997

PATIENT
  Sex: Male

DRUGS (1)
  1. LEQVIO [Suspect]
     Active Substance: INCLISIRAN SODIUM
     Indication: Low density lipoprotein increased
     Dosage: 284 MG, OTHER, (DAY 1, DAY 90, Q6 MONTHS)
     Route: 058

REACTIONS (3)
  - Dysuria [Unknown]
  - Arthralgia [Unknown]
  - Diarrhoea [Unknown]
